FAERS Safety Report 5864997-5 (Version None)
Quarter: 2008Q3

REPORT INFORMATION
  Report Type: 
  Country: None (occurrence: None)
  Receive Date: 20080829
  Receipt Date: 20080722
  Transmission Date: 20090109
  Serious: No
  Sender: FDA-Public Use
  Company Number: US-ABBOTT-08P-163-0464676-00

PATIENT
  Sex: Female
  Weight: 63.56 kg

DRUGS (3)
  1. SIMCOR [Suspect]
     Indication: BLOOD CHOLESTEROL
     Dosage: 500/20 MG, IN THE EVENING
     Route: 048
     Dates: start: 20080715, end: 20080722
  2. CELECOXIB [Concomitant]
     Indication: ARTHRALGIA
     Route: 048
     Dates: start: 20060101
  3. SERTRALINE [Concomitant]
     Indication: ANTIDEPRESSANT THERAPY
     Route: 048
     Dates: start: 20080501

REACTIONS (6)
  - ABNORMAL DREAMS [None]
  - EYE SWELLING [None]
  - FATIGUE [None]
  - FLUSHING [None]
  - LACRIMATION INCREASED [None]
  - MYALGIA [None]
